FAERS Safety Report 12806123 (Version 2)
Quarter: 2016Q4

REPORT INFORMATION
  Report Type: Report from Study
  Country: CA (occurrence: CA)
  Receive Date: 20161004
  Receipt Date: 20161102
  Transmission Date: 20170207
  Serious: Yes (Other)
  Sender: FDA-Public Use
  Company Number: CA-GLAXOSMITHKLINE-CA2016GSK144459

PATIENT
  Sex: Male

DRUGS (7)
  1. DOVONEX [Concomitant]
     Active Substance: CALCIPOTRIENE
  2. COSENTYX [Suspect]
     Active Substance: SECUKINUMAB
     Indication: PSORIASIS
     Dosage: 300 MG, QMO
     Route: 058
     Dates: start: 20160712
  3. STELARA [Concomitant]
     Active Substance: USTEKINUMAB
     Dosage: UNK
     Dates: start: 2013, end: 201604
  4. METHOTREXATE. [Concomitant]
     Active Substance: METHOTREXATE
  5. CYCLOCORT [Concomitant]
     Active Substance: AMCINONIDE
  6. ENBREL [Concomitant]
     Active Substance: ETANERCEPT
     Dosage: UNK
     Dates: end: 2013
  7. DICLOFENAC [Suspect]
     Active Substance: DICLOFENAC
     Indication: PRODUCT USED FOR UNKNOWN INDICATION
     Dosage: 2 DF, QD
     Route: 065

REACTIONS (6)
  - Joint swelling [Unknown]
  - Paraesthesia [Unknown]
  - Psoriasis [Unknown]
  - Drug effect incomplete [Unknown]
  - Peripheral swelling [Unknown]
  - Psoriatic arthropathy [Not Recovered/Not Resolved]

NARRATIVE: CASE EVENT DATE: 2016
